FAERS Safety Report 17462727 (Version 1)
Quarter: 2020Q1

REPORT INFORMATION
  Report Type: Spontaneous
  Country: US (occurrence: US)
  Receive Date: 20200226
  Receipt Date: 20200226
  Transmission Date: 20200409
  Serious: No
  Sender: FDA-Public Use
  Company Number: US-ELI_LILLY_AND_COMPANY-US202002012269

PATIENT
  Sex: Male

DRUGS (6)
  1. HUMALOG [Suspect]
     Active Substance: INSULIN LISPRO
     Dosage: UNK, PRN (SLIDING SCALE)
     Route: 058
  2. METFORMIN [Concomitant]
     Active Substance: METFORMIN HYDROCHLORIDE
     Indication: TYPE 2 DIABETES MELLITUS
     Dosage: 1000 MG, TID
  3. LISINOPRIL. [Concomitant]
     Active Substance: LISINOPRIL
     Indication: HYPERTENSION
     Dosage: 20 MG, EACH EVENING (NIGHTLY)
  4. LIPITOR [Concomitant]
     Active Substance: ATORVASTATIN CALCIUM
     Indication: BLOOD CHOLESTEROL INCREASED
     Dosage: 80 MG, EACH EVENING (NIGHT)
  5. HUMALOG [Suspect]
     Active Substance: INSULIN LISPRO
     Indication: TYPE 2 DIABETES MELLITUS
     Dosage: UNK, PRN (SLIDING SCALE)
     Route: 058
  6. TRESIBA [Concomitant]
     Active Substance: INSULIN DEGLUDEC
     Indication: TYPE 2 DIABETES MELLITUS
     Dosage: 56 U, EACH EVENING (AT BEDTIME)

REACTIONS (1)
  - Somnolence [Recovered/Resolved]
